FAERS Safety Report 16251234 (Version 1)
Quarter: 2019Q2

REPORT INFORMATION
  Report Type: Spontaneous
  Country: US (occurrence: US)
  Receive Date: 20190326
  Receipt Date: 20190326
  Transmission Date: 20190711
  Serious: Yes (Life-Threatening, Hospitalization, Disabling, Congenital Anomaly)
  Sender: FDA-Public Use
  Company Number: None

PATIENT
  Age: 33 Year
  Sex: Female
  Weight: 74.25 kg

DRUGS (9)
  1. PALIPERIDONE. [Suspect]
     Active Substance: PALIPERIDONE
  2. VITAMIN B COMPLEX [Concomitant]
     Active Substance: CYANOCOBALAMIN\DEXPANTHENOL\NIACINAMIDE\PYRIDOXINE HYDROCHLORIDE\RIBOFLAVIN 5^-PHOSPHATE SODIUM\THIAMINE HYDROCHLORIDE\VITAMIN B COMPLEX
  3. AUGEMENTIN [Concomitant]
  4. VITAMIN D NOS [Concomitant]
     Active Substance: VITAMIN D NOS
  5. RISPERDAL [Suspect]
     Active Substance: RISPERIDONE
  6. MAGNESIUM [Concomitant]
     Active Substance: MAGNESIUM
  7. TYLENOL [Concomitant]
     Active Substance: ACETAMINOPHEN
  8. INVEGA SUSTENNA [Suspect]
     Active Substance: PALIPERIDONE PALMITATE
     Indication: PERINATAL DEPRESSION
     Dosage: ?          QUANTITY:1 INJECTION(S);OTHER FREQUENCY:ONCE A MONTH;?
     Route: 030
     Dates: start: 20080701, end: 20180703
  9. MULTIVITAMIN [Concomitant]
     Active Substance: VITAMINS

REACTIONS (16)
  - Pain [None]
  - Injection site pain [None]
  - Abortion spontaneous [None]
  - Tardive dyskinesia [None]
  - Drug hypersensitivity [None]
  - Galactorrhoea [None]
  - Neuralgia [None]
  - Infertility [None]
  - Hirsutism [None]
  - Hypertension [None]
  - Weight increased [None]
  - Oedema [None]
  - Disability [None]
  - Exposure during pregnancy [None]
  - Hyperglycaemia [None]
  - Glucose tolerance impaired [None]

NARRATIVE: CASE EVENT DATE: 20170512
